FAERS Safety Report 9984596 (Version 1)
Quarter: 2014Q1

REPORT INFORMATION
  Report Type: Other
  Country: ES (occurrence: ES)
  Receive Date: 20140307
  Receipt Date: 20140307
  Transmission Date: 20141002
  Serious: Yes (Death, Other)
  Sender: FDA-Public Use
  Company Number: ES-CUBIST PHARMACEUTICAL, INC.-2014CBST000354

PATIENT
  Sex: 0

DRUGS (6)
  1. CUBICIN [Suspect]
     Indication: INFECTION
     Dosage: 750 MG, ONCE A DAY
     Route: 042
     Dates: start: 20130131, end: 20130206
  2. DALTEPARIN NA [Concomitant]
     Indication: PRODUCT USED FOR UNKNOWN INDICATION
     Dosage: UNK UNK, UNK
     Route: 065
     Dates: start: 20130205, end: 20130205
  3. RIFAMPICINE [Concomitant]
     Indication: PRODUCT USED FOR UNKNOWN INDICATION
     Dosage: UNK UNK, UNK
     Route: 065
     Dates: start: 20130130, end: 20130219
  4. HUMAN ALBUMIN [Concomitant]
     Indication: PRODUCT USED FOR UNKNOWN INDICATION
     Dosage: UNK UNK, UNK
     Route: 065
     Dates: start: 20130201, end: 20130204
  5. TRIMETOPRIM + SULFAMETOXAZOL [Concomitant]
     Indication: PRODUCT USED FOR UNKNOWN INDICATION
     Dosage: UNK UNK, UNK
     Route: 065
     Dates: start: 20130129, end: 20130131
  6. KONAKION [Concomitant]
     Indication: PRODUCT USED FOR UNKNOWN INDICATION
     Dosage: UNK UNK, UNK
     Route: 065
     Dates: start: 20130205, end: 20130208

REACTIONS (2)
  - Septic shock [Fatal]
  - Supraventricular tachycardia [Unknown]
